FAERS Safety Report 9556830 (Version 2)
Quarter: 2013Q4

REPORT INFORMATION
  Report Type: Spontaneous
  Country: US (occurrence: US)
  Receive Date: 20130926
  Receipt Date: 20131024
  Transmission Date: 20140711
  Serious: Yes (Hospitalization)
  Sender: FDA-Public Use
  Company Number: US-MERCK-1309USA007029

PATIENT
  Age: 54 Year
  Sex: Male

DRUGS (5)
  1. VICTRELIS [Suspect]
     Indication: HEPATITIS C
     Dosage: UNK
     Dates: start: 2011
  2. PEGINTRON [Suspect]
     Indication: HEPATITIS C
     Dosage: UNK
     Dates: start: 2009
  3. REBETOL [Suspect]
     Indication: HEPATITIS C
     Dosage: 800 MG, UNK
     Dates: start: 2009
  4. REBETOL [Suspect]
     Dosage: UNK
     Dates: start: 2002
  5. TACROLIMUS [Concomitant]
     Dosage: UNK
     Dates: start: 2009

REACTIONS (3)
  - Syncope [Unknown]
  - Fatigue [Unknown]
  - Anaemia [Unknown]
